FAERS Safety Report 10642982 (Version 1)
Quarter: 2014Q4

REPORT INFORMATION
  Report Type: Spontaneous
  Country: US (occurrence: BR)
  Receive Date: 20141210
  Receipt Date: 20141210
  Transmission Date: 20150529
  Serious: Yes (Death)
  Sender: FDA-Public Use
  Company Number: BR-FRI-1000072872

PATIENT
  Age: 25 Year
  Sex: Female

DRUGS (3)
  1. QUETIAPINE [Concomitant]
     Active Substance: QUETIAPINE
  2. SAPHRIS [Suspect]
     Active Substance: ASENAPINE MALEATE
     Dosage: 10 MG
     Route: 060
  3. FLUOXETINE [Concomitant]
     Active Substance: FLUOXETINE\FLUOXETINE HYDROCHLORIDE

REACTIONS (2)
  - Muscle rigidity [Fatal]
  - Pyrexia [Fatal]

NARRATIVE: CASE EVENT DATE: 20141126
